FAERS Safety Report 24890162 (Version 2)
Quarter: 2025Q1

REPORT INFORMATION
  Report Type: Spontaneous
  Country: US (occurrence: US)
  Receive Date: 20250127
  Receipt Date: 20250307
  Transmission Date: 20250408
  Serious: No
  Sender: MERCK SHARP & DOHME LLC
  Company Number: US-009507513-2501USA006120

PATIENT
  Age: 75 Year
  Sex: Male

DRUGS (3)
  1. JANUVIA [Suspect]
     Active Substance: SITAGLIPTIN PHOSPHATE
     Indication: Type 2 diabetes mellitus
     Dosage: DOSE DESCRIPTION : 100 MILLIGRAM, QD?DAILY DOSE : 100 MILLIGRAM?CONCENTRATION: 100 MILLIGRAM
     Route: 048
  2. JANUVIA [Suspect]
     Active Substance: SITAGLIPTIN PHOSPHATE
     Indication: Type 2 diabetes mellitus
     Dosage: DOSE DESCRIPTION : 50 MILLIGRAM, QD?DAILY DOSE : 50 MILLIGRAM
     Route: 048
  3. TRULICITY [Suspect]
     Active Substance: DULAGLUTIDE

REACTIONS (1)
  - Weight decreased [Unknown]

NARRATIVE: CASE EVENT DATE: 20250107
